FAERS Safety Report 7887036-3 (Version None)
Quarter: 2011Q4

REPORT INFORMATION
  Report Type: 
  Country: None (occurrence: None)
  Receive Date: 20111102
  Receipt Date: 20110714
  Transmission Date: 20120403
  Serious: No
  Sender: FDA-Public Use
  Company Number: US-AMGEN-USASP2011035817

PATIENT
  Age: 50 Year
  Sex: Female

DRUGS (2)
  1. ESTRADIOL [Concomitant]
  2. ENBREL [Suspect]
     Indication: RHEUMATOID ARTHRITIS
     Dosage: 50 MG, QWK
     Dates: start: 20101124

REACTIONS (5)
  - NIGHT SWEATS [None]
  - HEADACHE [None]
  - INJECTION SITE PAIN [None]
  - CONJUNCTIVITIS INFECTIVE [None]
  - INJECTION SITE HAEMATOMA [None]
